FAERS Safety Report 8809962 (Version 1)
Quarter: 2012Q4

REPORT INFORMATION
  Report Type: 
  Country: US (occurrence: US)
  Receive Date: 20120926
  Receipt Date: 20120926
  Transmission Date: 20130627
  Serious: Yes (Other)
  Sender: FDA-Public Use
  Company Number: US-009507513-1209USA007001

PATIENT
  Sex: Male

DRUGS (5)
  1. NOXAFIL [Suspect]
     Indication: PROPHYLAXIS
  2. NOXAFIL [Suspect]
     Indication: SYSTEMIC MYCOSIS
  3. SIROLIMUS [Suspect]
     Indication: PROPHYLAXIS AGAINST GRAFT VERSUS HOST DISEASE
  4. SIROLIMUS [Suspect]
     Indication: GRAFT VERSUS HOST DISEASE
  5. TACROLIMUS [Concomitant]

REACTIONS (4)
  - Blood lactate dehydrogenase increased [Recovered/Resolved]
  - Thrombocytopenia [Recovered/Resolved]
  - Thrombotic microangiopathy [Unknown]
  - Red blood cell schistocytes present [Unknown]
